FAERS Safety Report 9893102 (Version 2)
Quarter: 2014Q1

REPORT INFORMATION
  Report Type: Spontaneous
  Country: DE (occurrence: DE)
  Receive Date: 20140213
  Receipt Date: 20140307
  Transmission Date: 20141002
  Serious: Yes (Other)
  Sender: FDA-Public Use
  Company Number: DE-BRISTOL-MYERS SQUIBB COMPANY-20145173

PATIENT
  Age: 40 Year
  Sex: Male
  Weight: 89 kg

DRUGS (1)
  1. ABILIFY TABS 15 MG [Suspect]
     Indication: PSYCHOTIC DISORDER
     Dosage: TAKING DRUG FOR 3 YRS
     Dates: start: 2000, end: 2013

REACTIONS (2)
  - Thrombocytosis [Unknown]
  - Off label use [Unknown]
